FAERS Safety Report 12682046 (Version 1)
Quarter: 2016Q3

REPORT INFORMATION
  Report Type: Spontaneous
  Country: FR (occurrence: FR)
  Receive Date: 20160824
  Receipt Date: 20160824
  Transmission Date: 20161109
  Serious: Yes (Other)
  Sender: FDA-Public Use
  Company Number: FR-009507513-1602FRA005242

PATIENT
  Age: 16 Year
  Sex: Female
  Weight: 70 kg

DRUGS (1)
  1. NEXPLANON [Suspect]
     Active Substance: ETONOGESTREL
     Indication: CONTRACEPTION
     Dosage: INSERTED IN THE INTERNAL FACE OF THE LEFT ARM
     Route: 059
     Dates: start: 20150423, end: 20160801

REACTIONS (8)
  - Breast feeding [Recovered/Resolved]
  - Device dislocation [Recovered/Resolved]
  - Device breakage [Recovered/Resolved]
  - Device deployment issue [Recovered/Resolved]
  - Implant site scar [Unknown]
  - Inappropriate schedule of drug administration [Unknown]
  - Implant site pruritus [Unknown]
  - Wrong technique in product usage process [Unknown]

NARRATIVE: CASE EVENT DATE: 20150423
